FAERS Safety Report 7228250-X (Version None)
Quarter: 2011Q1

REPORT INFORMATION
  Report Type: 
  Country: None (occurrence: None)
  Receive Date: 20110114
  Receipt Date: 20110110
  Transmission Date: 20110831
  Serious: Yes (Death, Life-Threatening, Disabling, Other)
  Sender: FDA-Public Use
  Company Number: US-ASTRAZENECA-2011SE01380

PATIENT
  Age: 25 Year
  Sex: Male

DRUGS (3)
  1. SEROQUEL XR [Suspect]
     Indication: BIPOLAR I DISORDER
     Route: 048
     Dates: start: 20090703
  2. WELLBUTRIN SR [Suspect]
     Indication: BIPOLAR I DISORDER
     Route: 048
     Dates: start: 20090909
  3. SUBOXONE [Suspect]
     Indication: POLYSUBSTANCE DEPENDENCE
     Route: 048

REACTIONS (1)
  - DEATH [None]
